FAERS Safety Report 16731113 (Version 1)
Quarter: 2019Q4

REPORT INFORMATION
  Report Type: Spontaneous
  Country: US (occurrence: US)
  Receive Date: 20190822
  Receipt Date: 20190822
  Transmission Date: 20200122
  Serious: Yes (Death)
  Sender: FDA-Public Use
  Company Number: None

PATIENT
  Age: 67 Year
  Sex: Male

DRUGS (1)
  1. CLOZAPINE. [Suspect]
     Active Substance: CLOZAPINE
     Indication: PSYCHOTIC DISORDER
     Route: 048

REACTIONS (9)
  - Constipation [None]
  - Loss of consciousness [None]
  - Cerebrovascular accident [None]
  - Fall [None]
  - Abdominal pain upper [None]
  - Balance disorder [None]
  - Seizure [None]
  - Vomiting [None]
  - Cardio-respiratory arrest [None]

NARRATIVE: CASE EVENT DATE: 20190708
